FAERS Safety Report 20529940 (Version 1)
Quarter: 2022Q1

REPORT INFORMATION
  Report Type: Spontaneous
  Country: MX (occurrence: MX)
  Receive Date: 20220301
  Receipt Date: 20220301
  Transmission Date: 20220423
  Serious: Yes (Hospitalization, Other)
  Sender: FDA-Public Use
  Company Number: MX-IPCA LABORATORIES LIMITED-IPC-2022-MX-000247

PATIENT

DRUGS (1)
  1. METFORMIN HYDROCHLORIDE [Suspect]
     Active Substance: METFORMIN HYDROCHLORIDE
     Indication: Product used for unknown indication
     Dosage: 17 GRAM (20 TABLETS OF 850 MILLIGRAM)
     Route: 048

REACTIONS (6)
  - Metabolic acidosis [Recovering/Resolving]
  - Hyperlactacidaemia [Recovering/Resolving]
  - Toxicity to various agents [Recovering/Resolving]
  - Somnolence [Recovering/Resolving]
  - Suicide attempt [Unknown]
  - Intentional overdose [Unknown]
